FAERS Safety Report 14785772 (Version 1)
Quarter: 2018Q2

REPORT INFORMATION
  Report Type: Spontaneous
  Country: US (occurrence: US)
  Receive Date: 20180420
  Receipt Date: 20180420
  Transmission Date: 20180711
  Serious: Yes (Death, Hospitalization)
  Sender: FDA-Public Use
  Company Number: US-KERYX BIOPHARMACEUTICALS INC.-2018US003876

PATIENT
  Age: 56 Year
  Sex: Female

DRUGS (1)
  1. AURYXIA [Suspect]
     Active Substance: TETRAFERRIC TRICITRATE DECAHYDRATE
     Indication: HYPERPHOSPHATAEMIA
     Dosage: 6 G (6 TABLETS), QD
     Route: 048
     Dates: start: 20171016, end: 20180404

REACTIONS (2)
  - Post procedural complication [Fatal]
  - Leg amputation [Unknown]

NARRATIVE: CASE EVENT DATE: 20180404
